FAERS Safety Report 6837309-8 (Version None)
Quarter: 2010Q3

REPORT INFORMATION
  Report Type: 
  Country: None (occurrence: None)
  Receive Date: 20100713
  Receipt Date: 20070509
  Transmission Date: 20110219
  Serious: No
  Sender: FDA-Public Use
  Company Number: US-PFIZER INC-2007038259

PATIENT
  Sex: Female
  Weight: 79.545 kg

DRUGS (6)
  1. CHANTIX [Suspect]
     Indication: SMOKING CESSATION THERAPY
     Dates: start: 20060101, end: 20070101
  2. WELLBUTRIN [Concomitant]
  3. ALBUTEROL [Concomitant]
  4. SPIRIVA [Concomitant]
  5. NEXIUM [Concomitant]
  6. ADVAIR DISKUS 100/50 [Concomitant]

REACTIONS (3)
  - ABDOMINAL PAIN UPPER [None]
  - BRONCHITIS [None]
  - NAUSEA [None]
